FAERS Safety Report 6338231-6 (Version None)
Quarter: 2009Q3

REPORT INFORMATION
  Report Type: 
  Country: None (occurrence: None)
  Receive Date: 20090902
  Receipt Date: 20090828
  Transmission Date: 20100115
  Serious: Yes (Hospitalization)
  Sender: FDA-Public Use
  Company Number: PHHO2009DE09767

PATIENT
  Sex: Male
  Weight: 93 kg

DRUGS (5)
  1. SANDIMMUNE [Suspect]
     Dosage: 60 MG, BID
     Route: 048
     Dates: start: 20080618
  2. SANDIMMUNE [Suspect]
     Dosage: 80 MG/DAY
     Route: 048
     Dates: end: 20090528
  3. RAD 666 RAD+TAB [Suspect]
     Indication: RENAL TRANSPLANT
     Dosage: 0.5 MG, BID
     Route: 048
     Dates: start: 20080915
  4. URBASON [Suspect]
     Indication: RENAL TRANSPLANT
     Dosage: 4 MG, QD
     Route: 048
     Dates: start: 20080618, end: 20090528
  5. MYFORTIC [Concomitant]
     Indication: RENAL TRANSPLANT
     Dosage: 1440 MG/ADY
     Dates: start: 20090528

REACTIONS (3)
  - BLOOD CREATININE INCREASED [None]
  - HYDRONEPHROSIS [None]
  - NEPHROPATHY TOXIC [None]
